FAERS Safety Report 4713156-8 (Version None)
Quarter: 2005Q3

REPORT INFORMATION
  Report Type: 
  Country: None (occurrence: None)
  Receive Date: 20050701
  Receipt Date: 20040618
  Transmission Date: 20060218
  Serious: Yes (Other)
  Sender: FDA-Public Use
  Company Number: 2004041462

PATIENT
  Age: 13 Year
  Sex: Male

DRUGS (1)
  1. ZOLOFT [Suspect]
     Indication: DEPRESSION
     Dosage: 100 MG (100 MG)

REACTIONS (3)
  - FEELING ABNORMAL [None]
  - IMPRISONMENT [None]
  - PSYCHOTIC DISORDER [None]
